FAERS Safety Report 8005665-3 (Version None)
Quarter: 2011Q4

REPORT INFORMATION
  Report Type: 
  Country: None (occurrence: None)
  Receive Date: 20111223
  Receipt Date: 20111216
  Transmission Date: 20120403
  Serious: Yes (Other)
  Sender: FDA-Public Use
  Company Number: US-JNJFOC-20111208037

PATIENT
  Sex: Male
  Weight: 86.18 kg

DRUGS (2)
  1. REMICADE [Suspect]
     Indication: CROHN'S DISEASE
     Route: 042
     Dates: start: 20111201
  2. REMICADE [Suspect]
     Route: 042
     Dates: start: 20111012, end: 20111101

REACTIONS (7)
  - HEADACHE [None]
  - INCORRECT DRUG ADMINISTRATION RATE [None]
  - OROPHARYNGEAL PAIN [None]
  - MUSCLE SPASMS [None]
  - PYREXIA [None]
  - DIABETES MELLITUS [None]
  - INFLUENZA LIKE ILLNESS [None]
